FAERS Safety Report 7424839-3 (Version None)
Quarter: 2011Q2

REPORT INFORMATION
  Report Type: 
  Country: None (occurrence: None)
  Receive Date: 20110419
  Receipt Date: 20110414
  Transmission Date: 20111010
  Serious: Yes (Hospitalization)
  Sender: FDA-Public Use
  Company Number: FR-BAXTER-2011BH003218

PATIENT
  Age: 82 Year
  Sex: Female

DRUGS (6)
  1. EXTRANEAL [Suspect]
     Indication: PERITONEAL DIALYSIS
     Route: 033
     Dates: start: 20080509
  2. NUTRINEAL [Suspect]
     Indication: PERITONEAL DIALYSIS
     Route: 033
     Dates: start: 20080509
  3. DIANEAL [Suspect]
     Indication: PERITONEAL DIALYSIS
     Route: 033
     Dates: start: 20080509
  4. DIANEAL [Suspect]
     Route: 033
     Dates: start: 20110205, end: 20110205
  5. EXTRANEAL [Suspect]
     Route: 033
     Dates: start: 20110205, end: 20110205
  6. NUTRINEAL [Suspect]
     Route: 033
     Dates: start: 20110205, end: 20110205

REACTIONS (3)
  - ILEUS [None]
  - VOMITING [None]
  - PERITONITIS BACTERIAL [None]
